FAERS Safety Report 8819775 (Version 1)
Quarter: 2012Q4

REPORT INFORMATION
  Report Type: 
  Country: US (occurrence: US)
  Receive Date: 20121001
  Receipt Date: 20121001
  Transmission Date: 20130627
  Serious: Yes (Other)
  Sender: FDA-Public Use
  Company Number: US-ROCHE-1129445

PATIENT
  Sex: Female

DRUGS (5)
  1. HERCEPTIN [Suspect]
     Indication: BREAST CANCER METASTATIC
     Route: 065
     Dates: start: 19981117
  2. CIPRO [Concomitant]
     Dosage: for 7 days
     Route: 048
  3. VICODIN [Concomitant]
     Dosage: 1-2 pills
     Route: 065
  4. TYLENOL [Concomitant]
  5. LEVAQUIN [Concomitant]
     Route: 048

REACTIONS (10)
  - Thrombocytopenia [Unknown]
  - Osteonecrosis [Unknown]
  - Pain in extremity [Unknown]
  - Anaemia [Unknown]
  - Influenza like illness [Unknown]
  - Cough [Unknown]
  - Pain [Unknown]
  - Headache [Unknown]
  - Nausea [Unknown]
  - Soft tissue disorder [Unknown]
